FAERS Safety Report 9476830 (Version 1)
Quarter: 2013Q3

REPORT INFORMATION
  Report Type: Spontaneous
  Country: None (occurrence: US)
  Receive Date: 20130826
  Receipt Date: 20130826
  Transmission Date: 20140515
  Serious: No
  Sender: FDA-Public Use
  Company Number: US-TARO-2012P1053224

PATIENT
  Age: 91 Year
  Sex: Female

DRUGS (10)
  1. CLOBETASOL PROPIONATE [Suspect]
     Route: 061
     Dates: start: 20120713, end: 20120713
  2. SYNTHROID [Concomitant]
  3. CALCITRIOL [Concomitant]
  4. VITAMIN D [Concomitant]
  5. EXOLON [Concomitant]
  6. FLUDROCORTISONE [Concomitant]
  7. POTASSIUM [Concomitant]
  8. LUNESTA [Concomitant]
  9. ONDANSETRON [Concomitant]
  10. LISINOPRIL [Concomitant]

REACTIONS (4)
  - Application site pain [Not Recovered/Not Resolved]
  - Application site swelling [Not Recovered/Not Resolved]
  - Application site erythema [Not Recovered/Not Resolved]
  - Off label use [Recovered/Resolved]
